FAERS Safety Report 5447598-2 (Version None)
Quarter: 2007Q3

REPORT INFORMATION
  Report Type: 
  Country: None (occurrence: None)
  Receive Date: 20070905
  Receipt Date: 20070905
  Transmission Date: 20080115
  Serious: Yes (Other)
  Sender: FDA-Public Use
  Company Number: None

PATIENT
  Age: 48 Year
  Sex: Male
  Weight: 87.7 kg

DRUGS (8)
  1. PROGRAF [Suspect]
     Indication: PROPHYLAXIS AGAINST TRANSPLANT REJECTION
     Dosage: 4 MG BID PO
     Route: 048
     Dates: start: 20070814, end: 20070821
  2. ESOMEPRAZOLE MAGNESIUM [Concomitant]
  3. MYCOPHENOLATE MOFETIL [Concomitant]
  4. INSULIN LISPRO SLIDING SCALE [Concomitant]
  5. SOLU-MEDROL [Concomitant]
  6. OXYCODONE HCL [Concomitant]
  7. DOCUSATE [Concomitant]
  8. HYDROMORPHONE HCL [Concomitant]

REACTIONS (6)
  - ERYTHEMA [None]
  - FEELING HOT [None]
  - HOT FLUSH [None]
  - HYPERHIDROSIS [None]
  - THYROID DISORDER [None]
  - TREMOR [None]
